FAERS Safety Report 7670988-4 (Version None)
Quarter: 2011Q3

REPORT INFORMATION
  Report Type: 
  Country: None (occurrence: None)
  Receive Date: 20110809
  Receipt Date: 20110728
  Transmission Date: 20111222
  Serious: Yes (Other)
  Sender: FDA-Public Use
  Company Number: US-ELI_LILLY_AND_COMPANY-US201105006109

PATIENT
  Sex: Male

DRUGS (4)
  1. HUMULIN R [Suspect]
     Dosage: UNK, BID
  2. CARBAMAZEPINE [Concomitant]
     Dosage: UNK
  3. HUMULIN R [Suspect]
     Indication: TYPE 1 DIABETES MELLITUS
     Dosage: UNK, BID
  4. LANTUS [Concomitant]
     Dosage: UNK

REACTIONS (6)
  - DRUG INEFFECTIVE [None]
  - BLOOD GLUCOSE INCREASED [None]
  - OFF LABEL USE [None]
  - HYPOGLYCAEMIA [None]
  - EPILEPSY [None]
  - POOR QUALITY SLEEP [None]
